FAERS Safety Report 23462536 (Version 1)
Quarter: 2024Q1

REPORT INFORMATION
  Report Type: Spontaneous
  Country: US (occurrence: None)
  Receive Date: 20240130
  Receipt Date: 20240130
  Transmission Date: 20240410
  Serious: Yes (Other)
  Sender: FDA-Public Use
  Company Number: None

PATIENT
  Age: 35 Year
  Sex: Male

DRUGS (2)
  1. TRAZODONE [Suspect]
     Active Substance: TRAZODONE HYDROCHLORIDE
     Indication: Sleep disorder
     Dosage: FREQUENCY : DAILY;?
     Route: 048
     Dates: start: 20240126, end: 20240126
  2. METHYLPHENIDATE [Concomitant]
     Active Substance: METHYLPHENIDATE
     Dates: start: 20240126

REACTIONS (13)
  - Feeling hot [None]
  - Hyperhidrosis [None]
  - Nausea [None]
  - Loss of consciousness [None]
  - Fall [None]
  - Head injury [None]
  - Cyanosis [None]
  - Dyspnoea [None]
  - Tremor [None]
  - Sensory loss [None]
  - Vomiting [None]
  - Diarrhoea [None]
  - Drug interaction [None]

NARRATIVE: CASE EVENT DATE: 20240126
